FAERS Safety Report 10167579 (Version 1)
Quarter: 2014Q2

REPORT INFORMATION
  Report Type: Spontaneous
  Country: US (occurrence: US)
  Receive Date: 20140512
  Receipt Date: 20140512
  Transmission Date: 20141212
  Serious: No
  Sender: FDA-Public Use
  Company Number: US-PFIZER INC-2014125058

PATIENT
  Age: 32 Year
  Sex: Female

DRUGS (1)
  1. SPIRONOLACTONE [Suspect]
     Indication: ACNE CYSTIC
     Dosage: UNK

REACTIONS (3)
  - Blood pressure decreased [Unknown]
  - Dizziness [Unknown]
  - Off label use [Unknown]
